FAERS Safety Report 20091583 (Version 2)
Quarter: 2021Q4

REPORT INFORMATION
  Report Type: Spontaneous
  Country: CN (occurrence: CN)
  Receive Date: 20211119
  Receipt Date: 20211210
  Transmission Date: 20220303
  Serious: Yes (Hospitalization, Other)
  Sender: FDA-Public Use
  Company Number: CN-SA-2021SA381434

PATIENT
  Age: 46 Year
  Sex: Female
  Weight: 62 kg

DRUGS (10)
  1. VANDETANIB [Suspect]
     Active Substance: VANDETANIB
     Indication: Medullary thyroid cancer
     Dosage: 300 MG, QD
     Route: 048
     Dates: start: 20210705, end: 20210830
  2. VANDETANIB [Suspect]
     Active Substance: VANDETANIB
     Dosage: 200 MG
     Route: 048
     Dates: start: 20211009
  3. LEVOTHYROXINE SODIUM [Suspect]
     Active Substance: LEVOTHYROXINE SODIUM
     Indication: Hypothyroidism
     Dosage: UNK
     Dates: start: 202003
  4. ALFACALCIDOL [Suspect]
     Active Substance: ALFACALCIDOL
     Indication: Hypoparathyroidism
     Dosage: UNK
     Route: 048
     Dates: start: 202003
  5. NIFEDIPINE [Suspect]
     Active Substance: NIFEDIPINE
     Indication: Hypertension
     Dosage: UNK
     Dates: start: 20210802
  6. LORATADINE [Suspect]
     Active Substance: LORATADINE
     Indication: Rash
     Dosage: UNK
     Dates: start: 20210815
  7. CALCIUM WITH VITAMIN D3 [CALCIUM CARBONATE;COLECALCIFEROL] [Concomitant]
     Indication: Hypocalcaemia
     Dosage: UNK
     Dates: start: 202003
  8. HERBALS\DIAMMONIUM GLYCYRRHIZINATE [Concomitant]
     Active Substance: HERBALS\DIAMMONIUM GLYCYRRHIZINATE
     Indication: Liver function test abnormal
     Dosage: UNK
     Dates: start: 20210817
  9. ADEMETIONINE BUTANEDISULFONATE [Concomitant]
     Active Substance: ADEMETIONINE BUTANEDISULFONATE
     Indication: Liver function test abnormal
     Dosage: UNK
     Dates: start: 20210923, end: 20210927
  10. MAGNESIUM ISOGLYCYRRHIZINATE [Concomitant]
     Active Substance: MAGNESIUM ISOGLYCYRRHIZINATE
     Indication: Liver function test abnormal
     Dosage: UNK
     Dates: start: 20210923

REACTIONS (4)
  - Hepatitis A [Unknown]
  - Drug-induced liver injury [Unknown]
  - Alanine aminotransferase increased [Unknown]
  - Aspartate aminotransferase increased [Unknown]
